FAERS Safety Report 17874010 (Version 1)
Quarter: 2020Q2

REPORT INFORMATION
  Report Type: Spontaneous
  Country: CA (occurrence: CA)
  Receive Date: 20200609
  Receipt Date: 20200609
  Transmission Date: 20200714
  Serious: Yes (Other)
  Sender: FDA-Public Use
  Company Number: CA-SA-2020SA142678

PATIENT

DRUGS (1)
  1. FERRLECIT [Suspect]
     Active Substance: SODIUM FERRIC GLUCONATE COMPLEX
     Dosage: RECEIVED 3 DOSES

REACTIONS (5)
  - Asthenia [Unknown]
  - Blood pressure systolic decreased [Unknown]
  - Loss of consciousness [Unknown]
  - Dizziness [Unknown]
  - Vision blurred [Unknown]
